FAERS Safety Report 23365090 (Version 2)
Quarter: 2024Q1

REPORT INFORMATION
  Report Type: Spontaneous
  Country: GR (occurrence: GR)
  Receive Date: 20240104
  Receipt Date: 20240115
  Transmission Date: 20240409
  Serious: Yes (Hospitalization, Other)
  Sender: FDA-Public Use
  Company Number: GR-ELI_LILLY_AND_COMPANY-GR202312011706

PATIENT
  Age: 29 Year
  Sex: Male
  Weight: 64 kg

DRUGS (5)
  1. OLANZAPINE PAMOATE [Suspect]
     Active Substance: OLANZAPINE PAMOATE
     Indication: Schizoaffective disorder
     Dosage: LONG ACTING INTRAMUSCULAR (LAIM) INJECTIONS, MONTHLY (1/M)
     Route: 030
     Dates: start: 201904
  2. OLANZAPINE PAMOATE [Suspect]
     Active Substance: OLANZAPINE PAMOATE
     Indication: Schizoaffective disorder
     Dosage: LONG ACTING INTRAMUSCULAR (LAIM) INJECTIONS, MONTHLY (1/M)
     Route: 030
     Dates: start: 202204
  3. OLANZAPINE PAMOATE [Suspect]
     Active Substance: OLANZAPINE PAMOATE
     Indication: Schizoaffective disorder
     Dosage: LONG ACTING INTRAMUSCULAR (LAIM) INJECTIONS, MONTHLY (1/M)
     Route: 030
     Dates: start: 202309
  4. OLANZAPINE PAMOATE [Suspect]
     Active Substance: OLANZAPINE PAMOATE
     Indication: Schizoaffective disorder
     Dosage: LONG ACTING INTRAMUSCULAR (LAIM) INJECTIONS, MONTHLY (1/M)
     Route: 030
     Dates: start: 20231203, end: 20231203
  5. VALPROATE SODIUM [Concomitant]
     Active Substance: VALPROATE SODIUM
     Indication: Schizoaffective disorder
     Dosage: ONGOING?DAILY DOSE: 2 DOSAGE FORM
     Route: 048

REACTIONS (11)
  - Oxygen saturation decreased [Recovered/Resolved]
  - Psychomotor hyperactivity [Recovered/Resolved]
  - Lethargy [Recovered/Resolved]
  - Hypotension [Recovered/Resolved]
  - Dysarthria [Recovered/Resolved]
  - Dysarthria [Recovered/Resolved]
  - Post-injection delirium sedation syndrome [Recovered/Resolved]
  - Post-injection delirium sedation syndrome [Recovered/Resolved]
  - Post-injection delirium sedation syndrome [Recovered/Resolved]
  - Post-injection delirium sedation syndrome [Recovered/Resolved]
  - Anxiety [Recovered/Resolved]

NARRATIVE: CASE EVENT DATE: 20190101
